FAERS Safety Report 26191179 (Version 1)
Quarter: 2025Q4

REPORT INFORMATION
  Report Type: Report from Study
  Country: CA (occurrence: CA)
  Receive Date: 20251223
  Receipt Date: 20251223
  Transmission Date: 20260117
  Serious: Yes (Hospitalization, Other)
  Sender: CELLTRION
  Company Number: CA-CELLTRION INC.-2025CA045643

PATIENT

DRUGS (3)
  1. INFLIXIMAB-DYYB [Suspect]
     Active Substance: INFLIXIMAB-DYYB
     Indication: Colitis ulcerative
     Dosage: REMDANTRY - LOADING - 5 MG/KG - IV (INTRAVENOUS) OTHER WEEKS
     Route: 042
     Dates: start: 20251121
  2. INFLIXIMAB-DYYB [Suspect]
     Active Substance: INFLIXIMAB-DYYB
     Dosage: REMDANTRY - LOADING - 5 MG/KG - IV  (INTRAVENOUS) 0, 2 AND 6 WEEKS
     Route: 042
     Dates: start: 20251121
  3. CORTISONE [Concomitant]
     Active Substance: CORTISONE

REACTIONS (3)
  - Gastrointestinal disorder [Unknown]
  - Haemorrhage [Unknown]
  - Inappropriate schedule of product administration [Unknown]

NARRATIVE: CASE EVENT DATE: 20251213
